FAERS Safety Report 9928746 (Version 2)
Quarter: 2014Q1

REPORT INFORMATION
  Report Type: Spontaneous
  Country: US (occurrence: US)
  Receive Date: 20140227
  Receipt Date: 20140304
  Transmission Date: 20141002
  Serious: Yes (Hospitalization, Other)
  Sender: FDA-Public Use
  Company Number: US-RB-063270-14

PATIENT
  Age: 56 Year
  Sex: Female

DRUGS (3)
  1. MUCINEX FAST MAX CAPLET COUGH [Suspect]
     Indication: NASAL CONGESTION
     Dosage: TOOK LAST ON 15/FEB/2014.
     Route: 048
     Dates: start: 20140214
  2. MUCINEX FAST MAX CAPLET COUGH [Suspect]
     Indication: COUGH
     Dosage: TOOK LAST ON 15/FEB/2014.
     Route: 048
     Dates: start: 20140214
  3. MAXIDE [Concomitant]
     Indication: HYPERTENSION

REACTIONS (6)
  - Hypertension [Recovered/Resolved]
  - Myocardial infarction [Recovered/Resolved]
  - Chest pain [Recovered/Resolved]
  - Electrocardiogram ST segment elevation [Recovered/Resolved]
  - Myocardial stunning [Recovered/Resolved]
  - Vomiting [Recovered/Resolved]
